FAERS Safety Report 4960761-X (Version None)
Quarter: 2006Q2

REPORT INFORMATION
  Report Type: 
  Country: None (occurrence: None)
  Receive Date: 20060403
  Receipt Date: 20051006
  Transmission Date: 20061013
  Serious: Yes (Hospitalization)
  Sender: FDA-Public Use
  Company Number: US-MERCK-0510USA05985

PATIENT
  Age: 72 Year
  Sex: Female
  Weight: 68 kg

DRUGS (2)
  1. VIOXX [Suspect]
     Indication: ARTHRALGIA
     Route: 048
     Dates: start: 20040101, end: 20040801
  2. ASPIRIN [Concomitant]
     Route: 065

REACTIONS (12)
  - ANGINA PECTORIS [None]
  - CARDIAC DISORDER [None]
  - CAROTID BRUIT [None]
  - DYSPNOEA EXERTIONAL [None]
  - HEART RATE IRREGULAR [None]
  - HYPERTENSION [None]
  - LIVER FUNCTION TEST ABNORMAL [None]
  - MITRAL VALVE INCOMPETENCE [None]
  - MITRAL VALVE PROLAPSE [None]
  - PALPITATIONS [None]
  - SYNCOPE [None]
  - TRICUSPID VALVE INCOMPETENCE [None]
